FAERS Safety Report 6767735-7 (Version None)
Quarter: 2010Q2

REPORT INFORMATION
  Report Type: 
  Country: None (occurrence: None)
  Receive Date: 20100614
  Receipt Date: 20100607
  Transmission Date: 20101027
  Serious: Yes (Other)
  Sender: FDA-Public Use
  Company Number: BR-ROCHE-708025

PATIENT
  Sex: Female
  Weight: 50 kg

DRUGS (2)
  1. RIVOTRIL [Suspect]
     Route: 048
     Dates: start: 20100531
  2. ATROVERAN [Concomitant]
     Dosage: FREQUENCY: AS NEEDED
     Route: 048
     Dates: end: 20100604

REACTIONS (22)
  - AMNESIA [None]
  - APHONIA [None]
  - BALANCE DISORDER [None]
  - DELUSION [None]
  - DEPRESSION [None]
  - DIPLOPIA [None]
  - DIZZINESS [None]
  - DYSARTHRIA [None]
  - EYE MOVEMENT DISORDER [None]
  - HEADACHE [None]
  - HYPOAESTHESIA [None]
  - INSOMNIA [None]
  - MOVEMENT DISORDER [None]
  - MUSCULAR WEAKNESS [None]
  - PSYCHOTIC DISORDER [None]
  - RESPIRATORY DEPRESSION [None]
  - SENSORY DISTURBANCE [None]
  - SOMNOLENCE [None]
  - SUICIDE ATTEMPT [None]
  - SYNCOPE [None]
  - TREMOR [None]
  - VERTIGO [None]
